FAERS Safety Report 8924797 (Version 2)
Quarter: 2012Q4

REPORT INFORMATION
  Report Type: 
  Country: US (occurrence: US)
  Receive Date: 20121126
  Receipt Date: 20121207
  Transmission Date: 20130627
  Serious: Yes (Other)
  Sender: FDA-Public Use
  Company Number: US-PFIZER INC-2012293801

PATIENT
  Age: 50 Year
  Sex: Female
  Weight: 74.83 kg

DRUGS (4)
  1. EFFEXOR XR [Suspect]
     Indication: HOT FLASHES
     Dosage: 75 mg, 2x/day
     Route: 048
     Dates: start: 2005, end: 20121012
  2. EFFEXOR XR [Suspect]
     Indication: NIGHT SWEAT
  3. EFFEXOR XR [Suspect]
     Indication: CHILLS
  4. EFFEXOR XR [Suspect]
     Indication: MOOD SWINGS

REACTIONS (16)
  - Off label use [Unknown]
  - Pulmonary embolism [Not Recovered/Not Resolved]
  - Withdrawal syndrome [Not Recovered/Not Resolved]
  - Loss of consciousness [Recovering/Resolving]
  - Nausea [Not Recovered/Not Resolved]
  - Tremor [Not Recovered/Not Resolved]
  - Dizziness [Not Recovered/Not Resolved]
  - Feeling abnormal [Not Recovered/Not Resolved]
  - Mental impairment [Not Recovered/Not Resolved]
  - Dizziness [Not Recovered/Not Resolved]
  - Vomiting [Not Recovered/Not Resolved]
  - Chills [Not Recovered/Not Resolved]
  - Hot flush [Not Recovered/Not Resolved]
  - Night sweats [Not Recovered/Not Resolved]
  - Mood swings [Not Recovered/Not Resolved]
  - Visual impairment [Not Recovered/Not Resolved]
